FAERS Safety Report 6348208-2 (Version None)
Quarter: 2009Q3

REPORT INFORMATION
  Report Type: 
  Country: None (occurrence: None)
  Receive Date: 20090908
  Receipt Date: 20090824
  Transmission Date: 20100115
  Serious: Yes (Hospitalization)
  Sender: FDA-Public Use
  Company Number: JPI-P-006089

PATIENT
  Age: 37 Year
  Sex: Male

DRUGS (11)
  1. FLUVOXAMINE MALEATE [Suspect]
     Indication: DEPRESSION
     Dosage: (100 MG, 1 D), ORAL; (200 MG, 1 D), ORAL
     Route: 048
     Dates: start: 20090121, end: 20090126
  2. FLUVOXAMINE MALEATE [Suspect]
     Indication: DEPRESSION
     Dosage: (100 MG, 1 D), ORAL; (200 MG, 1 D), ORAL
     Route: 048
     Dates: start: 20090127, end: 20090201
  3. LITHIUM CARBONATE [Suspect]
     Indication: MANIA
     Dosage: (300 MG, 1 D), ORAL; (400 MG, 1 D), ORAL
     Route: 048
     Dates: start: 20090121, end: 20090126
  4. LITHIUM CARBONATE [Suspect]
     Indication: MANIA
     Dosage: (300 MG, 1 D), ORAL; (400 MG, 1 D), ORAL
     Route: 048
     Dates: start: 20090127, end: 20090201
  5. CHLORPROMAZINE HCL [Concomitant]
  6. RISPERIDONE [Concomitant]
  7. PANTETHINE [Concomitant]
  8. CLOXAZOLAM [Concomitant]
  9. FLUNITRAZEPAM [Concomitant]
  10. ZOLPIDEM TARTRATE [Concomitant]
  11. OLANZAPINE [Concomitant]

REACTIONS (2)
  - BLOOD CREATINE PHOSPHOKINASE INCREASED [None]
  - SEROTONIN SYNDROME [None]
